FAERS Safety Report 6997147-2 (Version None)
Quarter: 2010Q3

REPORT INFORMATION
  Report Type: 
  Country: None (occurrence: None)
  Receive Date: 20100918
  Receipt Date: 20090914
  Transmission Date: 20110219
  Serious: No
  Sender: FDA-Public Use
  Company Number: US-WYE-H10965309

PATIENT
  Age: 74 Year
  Sex: Female

DRUGS (6)
  1. PRISTIQ [Suspect]
     Indication: DEPRESSION
     Route: 048
     Dates: start: 20090902
  2. IRON [Concomitant]
  3. PERCODAN-DEMI [Concomitant]
  4. DARVOCET-N 100 [Concomitant]
  5. PAXIL [Concomitant]
  6. PREDNISONE [Concomitant]

REACTIONS (5)
  - COORDINATION ABNORMAL [None]
  - DISTURBANCE IN ATTENTION [None]
  - HALLUCINATIONS, MIXED [None]
  - MEMORY IMPAIRMENT [None]
  - VISUAL ACUITY REDUCED [None]
